FAERS Safety Report 4700191-9 (Version None)
Quarter: 2005Q2

REPORT INFORMATION
  Report Type: 
  Country: None (occurrence: None)
  Receive Date: 20050627
  Receipt Date: 20050616
  Transmission Date: 20051028
  Serious: Yes (Other)
  Sender: FDA-Public Use
  Company Number: PHBS2005BR08659

PATIENT
  Age: 25 Year
  Sex: Female
  Weight: 70 kg

DRUGS (2)
  1. CODATEN [Suspect]
     Indication: PAIN
     Dosage: 1 DF, ONCE/SINGLE
     Route: 048
     Dates: start: 20050615, end: 20050615
  2. ZELMAC [Concomitant]
     Indication: IRRITABLE BOWEL SYNDROME

REACTIONS (4)
  - FEELING ABNORMAL [None]
  - HYPOTENSION [None]
  - TACHYCARDIA [None]
  - VOMITING [None]
